FAERS Safety Report 10653605 (Version 2)
Quarter: 2014Q4

REPORT INFORMATION
  Report Type: Spontaneous
  Country: US (occurrence: US)
  Receive Date: 20141216
  Receipt Date: 20141223
  Transmission Date: 20150529
  Serious: Yes (Other)
  Sender: FDA-Public Use
  Company Number: US-UCBSA-2014020850

PATIENT
  Age: 23 Year
  Sex: Female

DRUGS (2)
  1. CIMZIA [Suspect]
     Active Substance: CERTOLIZUMAB PEGOL
     Indication: RHEUMATOID ARTHRITIS
     Dosage: 200 MG, EV 2 WEEKS(QOW)
     Route: 058
     Dates: start: 201405, end: 201411
  2. CIMZIA [Suspect]
     Active Substance: CERTOLIZUMAB PEGOL
     Indication: CROHN^S DISEASE

REACTIONS (1)
  - Urticaria [Unknown]

NARRATIVE: CASE EVENT DATE: 201410
